FAERS Safety Report 4621690-4 (Version None)
Quarter: 2005Q1

REPORT INFORMATION
  Report Type: 
  Country: None (occurrence: None)
  Receive Date: 20050329
  Receipt Date: 20050314
  Transmission Date: 20050727
  Serious: Yes (Death)
  Sender: FDA-Public Use
  Company Number: US-NOVOPROD-243137

PATIENT
  Age: 10 Year
  Sex: Male
  Weight: 11 kg

DRUGS (3)
  1. NORDITROPIN? [Suspect]
     Indication: GROWTH HORMONE DEFICIENCY
     Dosage: 1.2 MG, 6 TIMES A WEEK
     Route: 058
  2. PREDNISONE [Concomitant]
     Indication: HYPOPITUITARISM
     Dosage: .7 MG, BID
     Route: 048
  3. LEVOXYL [Concomitant]
     Indication: HYPOPITUITARISM
     Dosage: 50 MG, QD
     Route: 048

REACTIONS (1)
  - DEATH [None]
